FAERS Safety Report 10625846 (Version 3)
Quarter: 2015Q1

REPORT INFORMATION
  Report Type: Report from Study
  Country: TW (occurrence: TW)
  Receive Date: 20141204
  Receipt Date: 20150202
  Transmission Date: 20150720
  Serious: Yes (Hospitalization)
  Sender: FDA-Public Use
  Company Number: TW-ABBVIE-14K-153-1313961-00

PATIENT
  Age: 62 Year
  Sex: Male
  Weight: 63 kg

DRUGS (6)
  1. FLUDIAZEPAM [Concomitant]
     Active Substance: FLUDIAZEPAM
     Indication: PRODUCT USED FOR UNKNOWN INDICATION
     Route: 048
     Dates: start: 20141028
  2. MOMETASONE FUROATE. [Concomitant]
     Active Substance: MOMETASONE FUROATE
     Indication: PRODUCT USED FOR UNKNOWN INDICATION
     Dosage: 0.1% 8GM/TUBE, QS/QD
     Route: 061
     Dates: start: 20141028
  3. HUMIRA [Suspect]
     Active Substance: ADALIMUMAB
     Indication: RHEUMATOID ARTHRITIS
     Route: 058
     Dates: start: 20130611, end: 20141115
  4. LEFLUNOMIDE. [Concomitant]
     Active Substance: LEFLUNOMIDE
     Indication: PRODUCT USED FOR UNKNOWN INDICATION
     Route: 048
     Dates: start: 20141028
  5. CELECOXIB. [Concomitant]
     Active Substance: CELECOXIB
     Indication: PRODUCT USED FOR UNKNOWN INDICATION
     Route: 048
     Dates: start: 20141028
  6. ASPIRIN. [Concomitant]
     Active Substance: ASPIRIN
     Indication: PRODUCT USED FOR UNKNOWN INDICATION
     Route: 048
     Dates: start: 20141028

REACTIONS (24)
  - C-reactive protein increased [Unknown]
  - Fungal infection [Unknown]
  - Haematocrit decreased [Unknown]
  - Aortic thrombosis [Unknown]
  - Salmonella test positive [Unknown]
  - Penetrating atherosclerotic ulcer [Recovering/Resolving]
  - Renal cyst [Unknown]
  - Aortic aneurysm [Recovering/Resolving]
  - Bacterial test positive [Unknown]
  - Spinal osteoarthritis [Unknown]
  - Blood albumin decreased [Unknown]
  - Penetrating atherosclerotic ulcer [Recovering/Resolving]
  - Gastric mucosal lesion [Unknown]
  - Blood urea increased [Unknown]
  - Haemoglobin decreased [Unknown]
  - Abdominal pain [Recovering/Resolving]
  - Aortitis [Unknown]
  - Lung infiltration [Unknown]
  - Bacillus test positive [Unknown]
  - Aortic aneurysm [Recovering/Resolving]
  - Candida infection [Unknown]
  - Dysuria [Recovering/Resolving]
  - Infection [Recovering/Resolving]
  - Exostosis [Unknown]

NARRATIVE: CASE EVENT DATE: 20141108
